FAERS Safety Report 8302387-6 (Version None)
Quarter: 2012Q2

REPORT INFORMATION
  Report Type: 
  Country: None (occurrence: None)
  Receive Date: 20120420
  Receipt Date: 20120419
  Transmission Date: 20120825
  Serious: No
  Sender: FDA-Public Use
  Company Number: US-B.I. PHARMACEUTICALS,INC./RIDGEFIELD-2012-BP-01495BP

PATIENT
  Sex: Male

DRUGS (6)
  1. VITAMIN K SUPPLEMENT [Concomitant]
     Indication: PLATELET COUNT DECREASED
     Route: 048
  2. LIPITOR [Concomitant]
     Indication: BLOOD CHOLESTEROL INCREASED
     Route: 048
  3. LOPRESSOR [Concomitant]
     Indication: HYPERTENSION
     Dosage: 100 MG
     Route: 048
  4. HYTRIN [Concomitant]
     Indication: HYPERTENSION
     Dosage: 25 MG
     Route: 048
  5. PRADAXA [Suspect]
     Indication: ATRIAL FIBRILLATION
     Dosage: 300 MG
     Route: 048
     Dates: start: 20110301, end: 20110601
  6. PRADAXA [Suspect]
     Dosage: 300 MG
     Route: 048
     Dates: start: 20120301, end: 20120401

REACTIONS (5)
  - WEIGHT DECREASED [None]
  - NAUSEA [None]
  - URINARY TRACT INFECTION [None]
  - DYSPEPSIA [None]
  - HAEMATURIA [None]
